FAERS Safety Report 7656387-X (Version None)
Quarter: 2011Q3

REPORT INFORMATION
  Report Type: 
  Country: None (occurrence: None)
  Receive Date: 20110804
  Receipt Date: 20110728
  Transmission Date: 20111222
  Serious: Yes (Other)
  Sender: FDA-Public Use
  Company Number: US-GLAXOSMITHKLINE-A0938794A

PATIENT
  Age: 16 Year
  Sex: Female

DRUGS (1)
  1. ADVAIR DISKUS 100/50 [Suspect]
     Indication: PRODUCT USED FOR UNKNOWN INDICATION
     Route: 055

REACTIONS (10)
  - NAUSEA [None]
  - ABDOMINAL PAIN UPPER [None]
  - LARYNGITIS [None]
  - COUGH [None]
  - THROAT IRRITATION [None]
  - UPPER RESPIRATORY TRACT INFECTION [None]
  - HEADACHE [None]
  - DRUG ADMINISTRATION ERROR [None]
  - CIRCULATORY COLLAPSE [None]
  - DYSPHONIA [None]
